FAERS Safety Report 24083306 (Version 1)
Quarter: 2024Q3

REPORT INFORMATION
  Report Type: Spontaneous
  Country: LK (occurrence: LK)
  Receive Date: 20240712
  Receipt Date: 20240712
  Transmission Date: 20241017
  Serious: Yes (Other)
  Sender: AMNEAL
  Company Number: LK-AMNEAL PHARMACEUTICALS-2024-AMRX-02504

PATIENT
  Age: 67 Year
  Sex: Male

DRUGS (3)
  1. OMEPRAZOLE [Suspect]
     Active Substance: OMEPRAZOLE
     Indication: Dyspepsia
     Dosage: UNK
     Route: 065
  2. CORIANDRUM SATIVUM [Concomitant]
     Indication: Phytotherapy
     Dosage: UNK
     Route: 065
  3. GINGER [Concomitant]
     Active Substance: GINGER
     Indication: Phytotherapy
     Dosage: UNK
     Route: 065

REACTIONS (1)
  - Insulin autoimmune syndrome [Recovering/Resolving]
